FAERS Safety Report 7674032-4 (Version None)
Quarter: 2011Q3

REPORT INFORMATION
  Report Type: 
  Country: None (occurrence: None)
  Receive Date: 20110810
  Receipt Date: 20110803
  Transmission Date: 20111222
  Serious: Yes (Other)
  Sender: FDA-Public Use
  Company Number: JP-BRISTOL-MYERS SQUIBB COMPANY-15945116

PATIENT
  Age: 1 Day
  Sex: Male
  Weight: 2 kg

DRUGS (2)
  1. ABILIFY [Suspect]
     Route: 064
  2. DIAZEPAM [Concomitant]
     Dosage: TABLETS

REACTIONS (1)
  - SMALL FOR DATES BABY [None]
